FAERS Safety Report 7088880-5 (Version None)
Quarter: 2010Q4

REPORT INFORMATION
  Report Type: 
  Country: None (occurrence: None)
  Receive Date: 20101029
  Receipt Date: 20101014
  Transmission Date: 20110411
  Serious: Yes (Other)
  Sender: FDA-Public Use
  Company Number: ACO_01737_2010

PATIENT
  Sex: Female
  Weight: 63.5036 kg

DRUGS (21)
  1. AMPYRA [Suspect]
     Indication: GAIT DISTURBANCE
     Dosage: 10 MG BID ORAL
     Route: 048
     Dates: start: 20100721, end: 20100804
  2. AXONA [Concomitant]
  3. EVISTA [Concomitant]
  4. ABILIFY [Concomitant]
  5. NUVIGIL [Concomitant]
  6. TOPAMAX [Concomitant]
  7. KLONOPIN [Concomitant]
  8. SEROQUEL [Concomitant]
  9. ROZEREM [Concomitant]
  10. EXELON [Concomitant]
  11. DYAZIDE [Concomitant]
  12. KLOR-CON [Concomitant]
  13. NEXIUM /01479303/ [Concomitant]
  14. ZYPREXA [Concomitant]
  15. NEURONTIN [Concomitant]
  16. COPAXONE /03175301/ [Concomitant]
  17. ULTRAM ER [Concomitant]
  18. CALCIUM 600 PLUS VITAMIN D [Concomitant]
  19. CURCUMIN [Concomitant]
  20. CAMPRAL [Concomitant]
  21. GLYCOLAX [Concomitant]

REACTIONS (10)
  - ARTHRALGIA [None]
  - BACK PAIN [None]
  - BURNING SENSATION [None]
  - FATIGUE [None]
  - GAIT DISTURBANCE [None]
  - HYPOAESTHESIA [None]
  - MOOD SWINGS [None]
  - RASH ERYTHEMATOUS [None]
  - RASH MORBILLIFORM [None]
  - RASH PRURITIC [None]
